FAERS Safety Report 13939868 (Version 4)
Quarter: 2017Q4

REPORT INFORMATION
  Report Type: Spontaneous
  Country: US (occurrence: US)
  Receive Date: 20170906
  Receipt Date: 20171009
  Transmission Date: 20180320
  Serious: Yes (Death, Hospitalization, Other)
  Sender: FDA-Public Use
  Company Number: US-ASTELLAS-2017US035271

PATIENT
  Age: 82 Year
  Sex: Male

DRUGS (1)
  1. XTANDI [Suspect]
     Active Substance: ENZALUTAMIDE
     Indication: NEOPLASM PROSTATE
     Route: 048
     Dates: start: 20170816, end: 20170908

REACTIONS (4)
  - Wheezing [Unknown]
  - Malignant neoplasm progression [Unknown]
  - Myocardial infarction [Fatal]
  - Cough [Unknown]

NARRATIVE: CASE EVENT DATE: 20170831
